FAERS Safety Report 11835379 (Version 4)
Quarter: 2016Q4

REPORT INFORMATION
  Report Type: Report from Study
  Country: BR (occurrence: BR)
  Receive Date: 20151215
  Receipt Date: 20161012
  Transmission Date: 20170206
  Serious: Yes (Hospitalization, Other)
  Sender: FDA-Public Use
  Company Number: BR-ROCHE-1585773

PATIENT
  Age: 48 Year
  Sex: Female
  Weight: 64 kg

DRUGS (30)
  1. PREDNISONE. [Suspect]
     Active Substance: PREDNISONE
     Indication: PRODUCT USED FOR UNKNOWN INDICATION
     Route: 048
  2. FLUOXETINE [Concomitant]
     Active Substance: FLUOXETINE HYDROCHLORIDE
     Indication: PRODUCT USED FOR UNKNOWN INDICATION
     Route: 065
  3. ATENOLOL. [Concomitant]
     Active Substance: ATENOLOL
     Indication: PRODUCT USED FOR UNKNOWN INDICATION
  4. LOSARTAN. [Concomitant]
     Active Substance: LOSARTAN
  5. PREGABALIN. [Concomitant]
     Active Substance: PREGABALIN
     Route: 065
  6. SULFASALAZINE. [Concomitant]
     Active Substance: SULFASALAZINE
     Indication: COLITIS ULCERATIVE
     Route: 065
  7. SULFASALAZINE. [Concomitant]
     Active Substance: SULFASALAZINE
     Route: 065
  8. AZULFIDINE [Concomitant]
     Active Substance: SULFASALAZINE
     Indication: PRODUCT USED FOR UNKNOWN INDICATION
     Route: 065
  9. PROCTYL (BRAZIL) [Concomitant]
  10. AMITRIPTYLINE [Concomitant]
     Active Substance: AMITRIPTYLINE
     Route: 065
  11. AZATHIOPRINE. [Concomitant]
     Active Substance: AZATHIOPRINE
     Indication: LIVER DISORDER
     Route: 065
  12. TRAMAL [Concomitant]
     Active Substance: TRAMADOL
     Indication: PAIN
     Route: 065
  13. ACTEMRA [Suspect]
     Active Substance: TOCILIZUMAB
     Indication: RHEUMATOID ARTHRITIS
     Dosage: DOSE: 200MG/10ML 1 F AMP. ?INFUSIONS WERE PERFORMED ON: 11/FEB/2015, 11/MAR/2015, 11/APR/2015, 11/MA
     Route: 042
     Dates: start: 20150211
  14. LORAZEPAM. [Concomitant]
     Active Substance: LORAZEPAM
     Route: 065
  15. OMEPRAZOLE. [Concomitant]
     Active Substance: OMEPRAZOLE
  16. ACTEMRA [Suspect]
     Active Substance: TOCILIZUMAB
     Dosage: DOSE: 200MG/10ML 1 F AMP. ?INFUSIONS WERE PERFORMED ON: 11/FEB/2015, 11/MAR/2015, 11/APR/2015, 11/MA
     Route: 042
     Dates: start: 20160101
  17. INSULIN [Concomitant]
     Active Substance: INSULIN NOS
     Indication: DIABETES MELLITUS
     Route: 065
  18. CITALOPRAM [Concomitant]
     Active Substance: CITALOPRAM HYDROBROMIDE
  19. MESALAZINE [Concomitant]
     Active Substance: MESALAMINE
  20. ACTEMRA [Suspect]
     Active Substance: TOCILIZUMAB
     Dosage: DOSE: 200MG/10ML 1 F AMP. ?INFUSIONS WERE PERFORMED ON: 11/FEB/2015, 11/MAR/2015, 11/APR/2015, 11/MA
     Route: 042
     Dates: start: 20150411
  21. LORAZEPAM. [Concomitant]
     Active Substance: LORAZEPAM
     Indication: DEPRESSION
     Route: 065
  22. FUROSEMIDE. [Concomitant]
     Active Substance: FUROSEMIDE
     Indication: PRODUCT USED FOR UNKNOWN INDICATION
  23. HUMALOG [Concomitant]
     Active Substance: INSULIN LISPRO
     Route: 065
  24. ACTEMRA [Suspect]
     Active Substance: TOCILIZUMAB
     Dosage: DOSE: 200MG/10ML 1 F AMP. ?INFUSIONS WERE PERFORMED ON: 11/FEB/2015, 11/MAR/2015, 11/APR/2015, 11/MA
     Route: 042
     Dates: start: 20150311
  25. ACTEMRA [Suspect]
     Active Substance: TOCILIZUMAB
     Dosage: DOSE: 200MG/10ML 1 F AMP. ?INFUSIONS WERE PERFORMED ON: 11/FEB/2015, 11/MAR/2015, 11/APR/2015, 11/MA
     Route: 042
     Dates: start: 20150511
  26. HUMIRA [Suspect]
     Active Substance: ADALIMUMAB
     Indication: PRODUCT USED FOR UNKNOWN INDICATION
     Route: 065
  27. AMITRIPTYLINE [Concomitant]
     Active Substance: AMITRIPTYLINE
     Indication: DEPRESSION
     Route: 065
  28. NAPRIX [Concomitant]
     Active Substance: RAMIPRIL
     Indication: PRODUCT USED FOR UNKNOWN INDICATION
  29. ENALAPRIL [Concomitant]
     Active Substance: ENALAPRIL
  30. GOLIMUMAB [Concomitant]
     Active Substance: GOLIMUMAB
     Indication: PAIN
     Route: 065

REACTIONS (16)
  - Systemic lupus erythematosus [Unknown]
  - Pain [Unknown]
  - Arthritis [Not Recovered/Not Resolved]
  - Blood pressure increased [Unknown]
  - Gastrointestinal disorder [Unknown]
  - Nausea [Unknown]
  - Infusion site pain [Not Recovered/Not Resolved]
  - Drug ineffective [Unknown]
  - Swelling [Not Recovered/Not Resolved]
  - Alopecia [Unknown]
  - Colitis ulcerative [Unknown]
  - Skin papilloma [Unknown]
  - Arthralgia [Not Recovered/Not Resolved]
  - Diarrhoea haemorrhagic [Unknown]
  - Vomiting [Unknown]
  - Inflammation [Not Recovered/Not Resolved]

NARRATIVE: CASE EVENT DATE: 201505
